FAERS Safety Report 9698058 (Version 2)
Quarter: 2015Q3

REPORT INFORMATION
  Report Type: Spontaneous
  Country: US (occurrence: US)
  Receive Date: 20131120
  Receipt Date: 20150727
  Transmission Date: 20151125
  Serious: Yes (Life-Threatening, Hospitalization, Other)
  Sender: FDA-Public Use
  Company Number: US-BAYER-2013-138940

PATIENT
  Age: 32 Year
  Sex: Female
  Weight: 49.89 kg

DRUGS (1)
  1. MIRENA [Suspect]
     Active Substance: LEVONORGESTREL
     Indication: CONTRACEPTION
     Dosage: 20 MCG/24HR, CONT
     Route: 015
     Dates: start: 200711, end: 200911

REACTIONS (10)
  - Uterine perforation [None]
  - Injury [None]
  - Abdominal pain lower [None]
  - Sepsis [None]
  - Malaise [None]
  - Scar [None]
  - Dyspareunia [None]
  - Device dislocation [None]
  - Device issue [None]
  - General physical health deterioration [None]

NARRATIVE: CASE EVENT DATE: 200911
